FAERS Safety Report 8326387-5 (Version None)
Quarter: 2012Q2

REPORT INFORMATION
  Report Type: 
  Country: None (occurrence: None)
  Receive Date: 20120501
  Receipt Date: 20120424
  Transmission Date: 20120825
  Serious: Yes (Death)
  Sender: FDA-Public Use
  Company Number: BR-ALEXION PHARMACEUTICALS INC.-A201200803

PATIENT
  Age: 10 Year
  Sex: Female

DRUGS (4)
  1. SOLIRIS [Suspect]
     Dosage: 300 MG, Q2W
     Route: 042
     Dates: start: 20120401, end: 20120414
  2. SOLIRIS [Suspect]
     Indication: THROMBOTIC MICROANGIOPATHY
     Dosage: 600 MG, 1ST WEEK
     Route: 042
     Dates: start: 20120331
  3. SOLIRIS [Suspect]
     Dosage: 300 MG, 2ND WEEK
     Route: 042
     Dates: start: 20120401
  4. CYCLOSPORINE [Concomitant]

REACTIONS (2)
  - MULTI-ORGAN FAILURE [None]
  - RENAL FAILURE ACUTE [None]
